FAERS Safety Report 15756656 (Version 1)
Quarter: 2018Q4

REPORT INFORMATION
  Report Type: Report from Study
  Country: FR (occurrence: FR)
  Receive Date: 20181224
  Receipt Date: 20181224
  Transmission Date: 20190205
  Serious: Yes (Hospitalization)
  Sender: FDA-Public Use
  Company Number: PHHO2018FR013354

PATIENT
  Age: 66 Year
  Sex: Male

DRUGS (3)
  1. EVEROLIMUS. [Suspect]
     Active Substance: EVEROLIMUS
     Indication: RENAL TRANSPLANT
     Dosage: 20 MG, UNK
     Route: 048
     Dates: start: 20150702
  2. PROGRAF [Suspect]
     Active Substance: TACROLIMUS\TACROLIMUS ANHYDROUS
     Indication: RENAL TRANSPLANT
     Dosage: 5 X 2
     Route: 065
     Dates: start: 20150629
  3. CORTANCYL [Concomitant]
     Active Substance: PREDNISONE
     Indication: RENAL TRANSPLANT
     Dosage: 15 X 2
     Route: 065
     Dates: start: 20150701

REACTIONS (1)
  - Prostatitis Escherichia coli [Recovering/Resolving]

NARRATIVE: CASE EVENT DATE: 20150711
